FAERS Safety Report 4878512-6 (Version None)
Quarter: 2006Q1

REPORT INFORMATION
  Report Type: 
  Country: None (occurrence: None)
  Receive Date: 20060110
  Receipt Date: 20060110
  Transmission Date: 20060701
  Serious: Yes (Other)
  Sender: FDA-Public Use
  Company Number: None

PATIENT

DRUGS (2)
  1. PREVACID [Suspect]
     Indication: CHEST PAIN
     Dosage: TAKE 1 CAPSULE PO DAILY
     Route: 048
     Dates: start: 20051022, end: 20051101
  2. PREVACID [Suspect]
     Indication: DYSPEPSIA
     Dosage: TAKE 1 CAPSULE PO DAILY
     Route: 048
     Dates: start: 20051022, end: 20051101

REACTIONS (5)
  - CHEST PAIN [None]
  - CONDITION AGGRAVATED [None]
  - LIMB DISCOMFORT [None]
  - PHARMACEUTICAL PRODUCT COMPLAINT [None]
  - POOR QUALITY DRUG ADMINISTERED [None]
